FAERS Safety Report 4913252-6 (Version None)
Quarter: 2006Q1

REPORT INFORMATION
  Report Type: 
  Country: None (occurrence: None)
  Receive Date: 20060210
  Receipt Date: 20060202
  Transmission Date: 20060701
  Serious: Yes (Hospitalization)
  Sender: FDA-Public Use
  Company Number: BR-2006-002095

PATIENT
  Age: 32 Year
  Sex: Female

DRUGS (2)
  1. YASMIN [Suspect]
     Dosage: 1 TAB(S), ORAL
     Route: 048
     Dates: start: 20050701
  2. NATURETI [Concomitant]

REACTIONS (3)
  - BACK PAIN [None]
  - HEADACHE [None]
  - SPINAL DISORDER [None]
